FAERS Safety Report 19848838 (Version 1)
Quarter: 2021Q3

REPORT INFORMATION
  Report Type: Spontaneous
  Country: DE (occurrence: DE)
  Receive Date: 20210918
  Receipt Date: 20210918
  Transmission Date: 20211014
  Serious: Yes (Congenital Anomaly, Other)
  Sender: FDA-Public Use
  Company Number: DE-ACCORD-238853

PATIENT
  Age: 0 Year
  Sex: Female
  Weight: 2.91 kg

DRUGS (3)
  1. FOLIC ACID. [Concomitant]
     Active Substance: FOLIC ACID
     Indication: VITAMIN SUPPLEMENTATION
     Dosage: 5 MG/D
     Route: 064
     Dates: start: 20200605, end: 20201119
  2. LEVETIRACETAM. [Suspect]
     Active Substance: LEVETIRACETAM
     Indication: TEMPORAL LOBE EPILEPSY
     Dosage: 3500 MG / D (UP TO 2500)
     Route: 064
     Dates: start: 20200216, end: 20201120
  3. DIPHTHERIA AND TETANUS TOXOIDS [Concomitant]
     Active Substance: DIPHTHERIA AND TETANUS TOXOIDS
     Indication: IMMUNISATION
     Route: 064
     Dates: start: 20200914, end: 20200914

REACTIONS (3)
  - Lymphangioma [Unknown]
  - Foetal exposure during pregnancy [Unknown]
  - Ankyloglossia congenital [Unknown]

NARRATIVE: CASE EVENT DATE: 20201120
